FAERS Safety Report 16807588 (Version 2)
Quarter: 2019Q3

REPORT INFORMATION
  Report Type: Spontaneous
  Country: US (occurrence: US)
  Receive Date: 20190914
  Receipt Date: 20190920
  Transmission Date: 20191005
  Serious: No
  Sender: FDA-Public Use
  Company Number: US-009507513-1909USA004659

PATIENT
  Sex: Female

DRUGS (1)
  1. NEXPLANON [Suspect]
     Active Substance: ETONOGESTREL
     Dosage: ROD IN THE LEFT ARM
     Route: 059
     Dates: start: 201907, end: 2019

REACTIONS (1)
  - Device kink [Recovered/Resolved]

NARRATIVE: CASE EVENT DATE: 2019
